FAERS Safety Report 14529215 (Version 1)
Quarter: 2018Q1

REPORT INFORMATION
  Report Type: Spontaneous
  Country: US (occurrence: US)
  Receive Date: 20180214
  Receipt Date: 20180214
  Transmission Date: 20180509
  Serious: No
  Sender: FDA-Public Use
  Company Number: US-PFIZER INC-2017547011

PATIENT
  Age: 68 Year
  Sex: Female

DRUGS (2)
  1. HALCION [Suspect]
     Active Substance: TRIAZOLAM
     Indication: PAIN
     Dosage: UNK, 2X/DAY (1 AT NIGHT, 1 WORK DAY)
  2. TRIAZOLAM. [Suspect]
     Active Substance: TRIAZOLAM
     Dosage: UNK (1 AT BED TIME, THEN 1 WHEN I GET UP TO GO TO DENTIST)

REACTIONS (3)
  - Drug effect delayed [Unknown]
  - Product use in unapproved indication [Recovered/Resolved]
  - Off label use [Unknown]
